FAERS Safety Report 7686967-7 (Version None)
Quarter: 2011Q3

REPORT INFORMATION
  Report Type: 
  Country: None (occurrence: None)
  Receive Date: 20110816
  Receipt Date: 20110803
  Transmission Date: 20111222
  Serious: Yes (Hospitalization)
  Sender: FDA-Public Use
  Company Number: US-SANOFI-AVENTIS-2011SA049906

PATIENT
  Age: 73 Year
  Sex: Female

DRUGS (11)
  1. DILTIAZEM [Concomitant]
  2. CLOPIDOGREL BISULFATE [Suspect]
     Route: 065
  3. LISINOPRIL [Concomitant]
  4. METOPROLOL TARTRATE [Concomitant]
  5. ACETYLSALICYLIC ACID SRT [Suspect]
     Indication: CORONARY ARTERY DISEASE
     Route: 065
  6. COUMADIN [Suspect]
     Route: 065
  7. GLYBURIDE [Concomitant]
  8. CLOPIDOGREL BISULFATE [Suspect]
     Indication: CORONARY ARTERY DISEASE
     Route: 065
  9. ACETYLSALICYLIC ACID SRT [Suspect]
     Route: 065
  10. COUMADIN [Suspect]
     Indication: CORONARY ARTERY DISEASE
     Route: 065
  11. SIMAVASTATIN [Concomitant]

REACTIONS (7)
  - PAIN [None]
  - HAEMORRHAGE [None]
  - HAEMATOMA [None]
  - GAIT DISTURBANCE [None]
  - PARAESTHESIA [None]
  - ARTHRALGIA [None]
  - FEMORAL NERVE INJURY [None]
